FAERS Safety Report 7790654-4 (Version None)
Quarter: 2011Q3

REPORT INFORMATION
  Report Type: 
  Country: None (occurrence: None)
  Receive Date: 20110930
  Receipt Date: 20110919
  Transmission Date: 20111222
  Serious: Yes (Death)
  Sender: FDA-Public Use
  Company Number: US-WATSON-2011-15032

PATIENT
  Sex: Female

DRUGS (1)
  1. FENTANYL-50 [Suspect]
     Indication: BACK PAIN
     Dosage: UNK
     Route: 062
     Dates: start: 20080717, end: 20080724

REACTIONS (3)
  - TOXICITY TO VARIOUS AGENTS [None]
  - UNRESPONSIVE TO STIMULI [None]
  - DEATH [None]
